FAERS Safety Report 9492439 (Version 1)
Quarter: 2013Q3

REPORT INFORMATION
  Report Type: Spontaneous
  Country: US (occurrence: US)
  Receive Date: 20130830
  Receipt Date: 20130830
  Transmission Date: 20140515
  Serious: Yes (Other)
  Sender: FDA-Public Use
  Company Number: CHPA2013US013554

PATIENT
  Age: 79 Year
  Sex: Female

DRUGS (1)
  1. ASCRIPTIN BUFFERED REG STRENGTH TABLETS [Suspect]
     Dosage: 325 MG, QD
     Route: 048
     Dates: start: 1992, end: 201307

REACTIONS (7)
  - Hypertension [Recovering/Resolving]
  - Intervertebral disc protrusion [Not Recovered/Not Resolved]
  - Spinal column stenosis [Not Recovered/Not Resolved]
  - Scoliosis [Not Recovered/Not Resolved]
  - Sciatica [Recovering/Resolving]
  - Back pain [Recovering/Resolving]
  - Weight decreased [Not Recovered/Not Resolved]
